FAERS Safety Report 6631395-6 (Version None)
Quarter: 2010Q1

REPORT INFORMATION
  Report Type: 
  Country: None (occurrence: None)
  Receive Date: 20100312
  Receipt Date: 20100303
  Transmission Date: 20100710
  Serious: Yes (Hospitalization)
  Sender: FDA-Public Use
  Company Number: JP-JNJFOC-20100201841

PATIENT
  Sex: Female
  Weight: 41 kg

DRUGS (56)
  1. ITRIZOLE [Suspect]
     Indication: ANTIFUNGAL PROPHYLAXIS
     Route: 048
  2. ONCOVIN [Interacting]
     Indication: ACUTE LYMPHOCYTIC LEUKAEMIA
     Route: 041
  3. ONCOVIN [Interacting]
     Route: 041
  4. ONCOVIN [Interacting]
     Route: 041
  5. DECADRON [Interacting]
     Indication: ACUTE LYMPHOCYTIC LEUKAEMIA
     Route: 042
  6. DECADRON [Interacting]
     Route: 042
  7. DECADRON [Interacting]
     Route: 042
  8. DECADRON [Suspect]
     Indication: ACUTE LYMPHOCYTIC LEUKAEMIA
     Route: 048
  9. DECADRON [Suspect]
     Route: 048
  10. DECADRON [Suspect]
     Route: 048
  11. VINCRISTINE SULFATE [Suspect]
     Indication: ACUTE LYMPHOCYTIC LEUKAEMIA
     Route: 065
  12. VINCRISTINE SULFATE [Suspect]
     Route: 065
  13. VINCRISTINE SULFATE [Suspect]
     Route: 065
  14. VINCRISTINE SULFATE [Suspect]
     Route: 065
  15. VINCRISTINE SULFATE [Suspect]
     Route: 065
  16. VINCRISTINE SULFATE [Suspect]
     Route: 065
  17. VINCRISTINE SULFATE [Suspect]
     Route: 065
  18. VINCRISTINE SULFATE [Suspect]
     Route: 065
  19. VINCRISTINE SULFATE [Suspect]
     Route: 065
  20. STEROIDS NOS [Concomitant]
     Indication: DRUG USE FOR UNKNOWN INDICATION
     Route: 065
  21. PREDONINE [Concomitant]
     Dosage: DOSE FROM 85MG T0 30 MG
     Route: 065
  22. PREDONINE [Concomitant]
     Route: 065
  23. DEXAMETHASONE [Concomitant]
     Indication: ACUTE LYMPHOCYTIC LEUKAEMIA
     Route: 065
  24. DECADRON [Concomitant]
     Route: 065
  25. DECADRON [Concomitant]
     Route: 065
  26. PARIET [Concomitant]
     Indication: DRUG USE FOR UNKNOWN INDICATION
     Route: 048
  27. MYSLEE [Concomitant]
     Indication: DRUG USE FOR UNKNOWN INDICATION
     Route: 048
  28. PAXIL [Concomitant]
     Indication: DRUG USE FOR UNKNOWN INDICATION
     Route: 048
  29. SUCRALFATE [Concomitant]
     Indication: DRUG USE FOR UNKNOWN INDICATION
     Route: 048
  30. URSO 250 [Concomitant]
     Indication: DRUG USE FOR UNKNOWN INDICATION
     Route: 048
  31. CIPROFLOXACIN HYDROCHLORIDE [Concomitant]
     Indication: DRUG USE FOR UNKNOWN INDICATION
     Route: 048
  32. METHOTREXATE [Concomitant]
     Indication: DRUG USE FOR UNKNOWN INDICATION
     Route: 042
  33. METHOTREXATE [Concomitant]
     Route: 042
  34. ADRIACIN [Concomitant]
     Indication: ACUTE LYMPHOCYTIC LEUKAEMIA
     Route: 041
  35. ADRIACIN [Concomitant]
     Route: 041
  36. ADRIACIN [Concomitant]
     Route: 041
  37. KYTRIL [Concomitant]
     Indication: DRUG USE FOR UNKNOWN INDICATION
     Route: 041
  38. KYTRIL [Concomitant]
     Route: 041
  39. METHYCOBAL [Concomitant]
     Indication: DRUG USE FOR UNKNOWN INDICATION
     Route: 048
  40. LASIX [Concomitant]
     Indication: DRUG USE FOR UNKNOWN INDICATION
     Route: 041
  41. PANTHENOL [Concomitant]
     Indication: DRUG USE FOR UNKNOWN INDICATION
     Route: 041
  42. GRAN [Concomitant]
     Indication: DRUG USE FOR UNKNOWN INDICATION
     Route: 065
  43. GRAN [Concomitant]
     Route: 065
  44. GRAN [Concomitant]
     Route: 065
  45. ANTIBIOTICS - RESISTANT LACTIC ACID BACTERIAE [Concomitant]
     Indication: DRUG USE FOR UNKNOWN INDICATION
     Route: 048
  46. FIRSTCIN [Concomitant]
     Indication: DRUG USE FOR UNKNOWN INDICATION
     Route: 065
  47. VANCOMYCIN HYDROCHLORIDE [Concomitant]
     Route: 065
  48. VANCOMYCIN HYDROCHLORIDE [Concomitant]
     Route: 065
  49. VANCOMYCIN HYDROCHLORIDE [Concomitant]
     Route: 065
  50. FASTIC [Concomitant]
     Indication: DRUG USE FOR UNKNOWN INDICATION
     Route: 065
  51. FASTIC [Concomitant]
     Route: 065
  52. STROCAIN [Concomitant]
     Indication: DRUG USE FOR UNKNOWN INDICATION
     Route: 065
  53. BAKTAR [Concomitant]
     Indication: DRUG USE FOR UNKNOWN INDICATION
     Dosage: 4 DF
     Route: 048
  54. ADONA [Concomitant]
     Indication: DRUG USE FOR UNKNOWN INDICATION
     Route: 065
  55. KENKETSU GLOVENIN-I-NICHIYAKU [Concomitant]
     Indication: DRUG USE FOR UNKNOWN INDICATION
     Route: 065
  56. CYLOCIDE [Concomitant]
     Indication: DRUG USE FOR UNKNOWN INDICATION
     Route: 065

REACTIONS (5)
  - DRUG INTERACTION [None]
  - MALAISE [None]
  - MUSCULAR WEAKNESS [None]
  - NEUROPATHY PERIPHERAL [None]
  - PYREXIA [None]
